FAERS Safety Report 5964718-1 (Version None)
Quarter: 2008Q4

REPORT INFORMATION
  Report Type: 
  Country: None (occurrence: None)
  Receive Date: 20081124
  Receipt Date: 20081124
  Transmission Date: 20090506
  Serious: Yes (Other)
  Sender: FDA-Public Use
  Company Number: None

PATIENT
  Age: 18 Year
  Sex: Male
  Weight: 79.3795 kg

DRUGS (1)
  1. OMNARIS [Suspect]
     Indication: SINUS DISORDER
     Dosage: 50MG 1 DAILY NASAL
     Route: 045
     Dates: start: 20081112, end: 20081117

REACTIONS (2)
  - TUNNEL VISION [None]
  - VISION BLURRED [None]
